FAERS Safety Report 16566692 (Version 2)
Quarter: 2019Q3

REPORT INFORMATION
  Report Type: Spontaneous
  Country: JP (occurrence: JP)
  Receive Date: 20190712
  Receipt Date: 20190919
  Transmission Date: 20191004
  Serious: Yes (Other)
  Sender: FDA-Public Use
  Company Number: JP-PFIZER INC-2019290677

PATIENT
  Age: 8 Decade
  Sex: Male

DRUGS (3)
  1. WARFARIN [Suspect]
     Active Substance: WARFARIN
  2. CELECOX [Suspect]
     Active Substance: CELECOXIB
  3. TRAMCET [Suspect]
     Active Substance: ACETAMINOPHEN\TRAMADOL

REACTIONS (3)
  - Haemorrhage [Unknown]
  - International normalised ratio fluctuation [Unknown]
  - Contusion [Unknown]
